FAERS Safety Report 4404200-6 (Version None)
Quarter: 2004Q3

REPORT INFORMATION
  Report Type: 
  Country: None (occurrence: None)
  Receive Date: 20040719
  Receipt Date: 20040707
  Transmission Date: 20050211
  Serious: Yes (Disabling)
  Sender: FDA-Public Use
  Company Number: 2004-115568-NL

PATIENT
  Age: 40 Year
  Sex: Female

DRUGS (2)
  1. MIRTAZAPINE [Suspect]
     Indication: DEPRESSION
     Dosage: 30 DF ORAL
     Route: 048
     Dates: start: 20040311, end: 20040318
  2. HYDROXYZINE HCL [Concomitant]

REACTIONS (3)
  - ACCOMMODATION DISORDER [None]
  - MYOPIA [None]
  - VISUAL ACUITY REDUCED [None]
